FAERS Safety Report 4383319-2 (Version None)
Quarter: 2004Q2

REPORT INFORMATION
  Report Type: 
  Country: None (occurrence: None)
  Receive Date: 20040618
  Receipt Date: 20040602
  Transmission Date: 20050107
  Serious: Yes (Hospitalization, Other)
  Sender: FDA-Public Use
  Company Number: US92071993A

PATIENT
  Age: 84 Year
  Sex: Male

DRUGS (9)
  1. HUMULIN 70/30 [Suspect]
     Indication: DIABETES MELLITUS
     Dosage: 40 U/2 DAY
     Dates: start: 19980101
  2. HUMULIN N [Suspect]
     Indication: DIABETES MELLITUS
  3. ENALAPRIL MALEATE [Concomitant]
  4. LOVASTATIN [Concomitant]
  5. PENTA-TRIAMTERENE [Concomitant]
  6. PLAVIX [Concomitant]
  7. NORVASC [Concomitant]
  8. TOPROL-XL [Concomitant]
  9. TYLENOL PM [Concomitant]

REACTIONS (7)
  - ASTHENOPIA [None]
  - BLOOD GLUCOSE INCREASED [None]
  - CATARACT OPERATION [None]
  - CEREBROVASCULAR ACCIDENT [None]
  - HEAD DISCOMFORT [None]
  - HEADACHE [None]
  - SOMNOLENCE [None]
